FAERS Safety Report 8981573 (Version 1)
Quarter: 2012Q4

REPORT INFORMATION
  Report Type: 
  Country: DE (occurrence: DE)
  Receive Date: 20121223
  Receipt Date: 20121223
  Transmission Date: 20130627
  Serious: Yes (Hospitalization)
  Sender: FDA-Public Use
  Company Number: DE-JNJFOC-20121015584

PATIENT
  Sex: Male
  Weight: 73 kg

DRUGS (11)
  1. XARELTO [Suspect]
     Indication: CEREBROVASCULAR ACCIDENT PROPHYLAXIS
     Route: 048
     Dates: start: 201206, end: 201207
  2. XARELTO [Suspect]
     Indication: ATRIAL FIBRILLATION
     Route: 048
     Dates: start: 201206, end: 201207
  3. XARELTO [Suspect]
     Indication: ATRIAL THROMBOSIS
     Route: 048
     Dates: start: 201206, end: 201207
  4. SIMVASTATIN [Concomitant]
     Indication: HYPOLIPIDAEMIA
     Route: 065
  5. ACETYLSALICYLIC ACID [Concomitant]
     Indication: CORONARY ARTERY DISEASE
     Dosage: ACETYL SALICYLIC ACID({=100mg)
     Route: 065
  6. SPIRO COMP [Concomitant]
     Indication: CARDIAC FAILURE
     Route: 065
  7. BISOPROLOL [Concomitant]
     Indication: CARDIAC FAILURE
     Route: 048
  8. RAMIPRIL [Concomitant]
     Indication: CARDIAC FAILURE
     Route: 065
  9. INSUMAN RAPID [Concomitant]
     Indication: DIABETES MELLITUS
     Route: 058
  10. PANTOPRAZOLE [Concomitant]
     Indication: PROPHYLAXIS
     Route: 065
  11. FURORESE [Concomitant]
     Indication: CARDIAC FAILURE
     Route: 065

REACTIONS (2)
  - Haemolytic anaemia [Not Recovered/Not Resolved]
  - General physical health deterioration [Unknown]
